FAERS Safety Report 14459768 (Version 3)
Quarter: 2021Q1

REPORT INFORMATION
  Report Type: Spontaneous
  Country: AT (occurrence: AT)
  Receive Date: 20180130
  Receipt Date: 20210225
  Transmission Date: 20210419
  Serious: Yes (Life-Threatening, Hospitalization, Other)
  Sender: FDA-Public Use
  Company Number: AT-HQ SPECIALTY-AT-2017INT000247

PATIENT

DRUGS (28)
  1. ZYPREXA [Suspect]
     Active Substance: OLANZAPINE
     Dosage: 30 MG, UNK
     Route: 048
     Dates: start: 20170408
  2. DEXMEDETOMIDINE HYDROCHLORIDE. [Suspect]
     Active Substance: DEXMEDETOMIDINE HYDROCHLORIDE
     Dosage: UNK
     Route: 042
     Dates: start: 2017, end: 2017
  3. QUILONORM [Suspect]
     Active Substance: LITHIUM
     Indication: PRODUCT USED FOR UNKNOWN INDICATION
     Dosage: 900 MG, UNK
     Route: 048
     Dates: end: 20170313
  4. ZYPREXA [Suspect]
     Active Substance: OLANZAPINE
     Indication: PRODUCT USED FOR UNKNOWN INDICATION
     Dosage: 10 MG, UNK
     Route: 048
     Dates: start: 20170314, end: 20170314
  5. SEROQUEL [Concomitant]
     Active Substance: QUETIAPINE FUMARATE
     Dosage: 900 MG, UNK
     Route: 065
     Dates: end: 20170315
  6. QUILONORM                          /00033702/ [Concomitant]
     Active Substance: LITHIUM CARBONATE
     Indication: PRODUCT USED FOR UNKNOWN INDICATION
     Dosage: UNK
     Route: 065
  7. DEXMEDETOMIDINE HYDROCHLORIDE. [Suspect]
     Active Substance: DEXMEDETOMIDINE HYDROCHLORIDE
     Indication: AGITATION
     Dosage: STRENGTH: 100 UG/ML; UPTO 5 ML/H
     Route: 042
     Dates: start: 20170314, end: 20170329
  8. QUILONORM [Suspect]
     Active Substance: LITHIUM
     Dosage: 1350 MG, UNK
     Route: 048
     Dates: start: 20170314, end: 20170315
  9. DESMOPRESIN [Concomitant]
     Active Substance: DESMOPRESSIN
     Dosage: 8 ?G, UNK
     Route: 065
  10. TEMESTA                            /00273201/ [Concomitant]
     Active Substance: LORAZEPAM
     Indication: PRODUCT USED FOR UNKNOWN INDICATION
     Dosage: 8 MG, UNK
     Route: 065
     Dates: start: 20170406
  11. CISORDINOL                         /00876702/ [Concomitant]
     Active Substance: ZUCLOPENTHIXOL
     Dosage: 50 MG, UNK
     Dates: end: 20170601
  12. ZYPREXA [Suspect]
     Active Substance: OLANZAPINE
     Dosage: 25 MG, UNK
     Route: 048
     Dates: start: 20170323, end: 20170407
  13. DESMOPRESIN [Concomitant]
     Active Substance: DESMOPRESSIN
     Indication: NEPHROGENIC DIABETES INSIPIDUS
     Dosage: 2 ?G, UNK
     Route: 065
     Dates: start: 20170404, end: 20170428
  14. DEXMEDETOMIDINE HYDROCHLORIDE. [Suspect]
     Active Substance: DEXMEDETOMIDINE HYDROCHLORIDE
     Dosage: 100 UG/ML; UPTO 5 ML/H
     Route: 042
     Dates: start: 20170422, end: 20170423
  15. QUILONORM [Suspect]
     Active Substance: LITHIUM
     Dosage: 1800 MG, 1 D
     Route: 048
     Dates: start: 20170316, end: 20170318
  16. DEPAKINE                           /00228501/ [Concomitant]
     Active Substance: VALPROIC ACID
     Dosage: 2000 MG, UNK
     Route: 065
     Dates: start: 20170324
  17. CISORDINOL                         /00876702/ [Concomitant]
     Active Substance: ZUCLOPENTHIXOL
     Indication: PRODUCT USED FOR UNKNOWN INDICATION
     Dosage: 25 MG, UNK
     Route: 065
     Dates: start: 20170414
  18. DEXMEDETOMIDINE HYDROCHLORIDE. [Suspect]
     Active Substance: DEXMEDETOMIDINE HYDROCHLORIDE
     Dosage: 100 UG/ML; UPTO 5 ML/H
     Route: 042
     Dates: start: 20170406, end: 20170406
  19. LITHIUM CARBONATE. [Suspect]
     Active Substance: LITHIUM CARBONATE
     Indication: PRODUCT USED FOR UNKNOWN INDICATION
     Dosage: 900 MG, UNK
     Route: 065
     Dates: end: 20170313
  20. UNASYN [Concomitant]
     Active Substance: AMPICILLIN SODIUM\SULBACTAM SODIUM
     Indication: INFECTION
     Dosage: 3000 MG, UNK
     Route: 065
     Dates: start: 20170317, end: 20170317
  21. TEMESTA                            /00273201/ [Concomitant]
     Active Substance: LORAZEPAM
     Dosage: 12.5 MG, UNK
     Route: 065
     Dates: end: 20170601
  22. QUETIAPINE FUMARATE. [Concomitant]
     Active Substance: QUETIAPINE FUMARATE
     Indication: PRODUCT USED FOR UNKNOWN INDICATION
     Dosage: 300 MG, UNK
     Route: 065
     Dates: start: 20170313
  23. LORAZEPAM. [Concomitant]
     Active Substance: LORAZEPAM
     Indication: PRODUCT USED FOR UNKNOWN INDICATION
     Dosage: 12.5 MG, UNK
     Route: 065
     Dates: end: 20170601
  24. UNASYN [Concomitant]
     Active Substance: AMPICILLIN SODIUM\SULBACTAM SODIUM
     Dosage: 1200 MG, UNK
     Route: 065
     Dates: start: 20170318, end: 20170325
  25. ABILIFY [Suspect]
     Active Substance: ARIPIPRAZOLE
     Indication: PRODUCT USED FOR UNKNOWN INDICATION
     Dosage: 10 MG, UNK
     Route: 030
     Dates: start: 20170314, end: 20170318
  26. DEPAKINE                           /00228501/ [Concomitant]
     Active Substance: VALPROIC ACID
     Indication: PRODUCT USED FOR UNKNOWN INDICATION
     Dosage: 400 MG, UNK
     Route: 065
     Dates: start: 20170317, end: 20170317
  27. SEROQUEL [Concomitant]
     Active Substance: QUETIAPINE FUMARATE
     Indication: PRODUCT USED FOR UNKNOWN INDICATION
     Dosage: 300 MG, UNK
     Route: 065
     Dates: start: 20170313
  28. ZUCLOPENTHIXOL ACETATE [Concomitant]
     Active Substance: ZUCLOPENTHIXOL ACETATE
     Indication: PRODUCT USED FOR UNKNOWN INDICATION
     Dosage: 25 MG, UNK
     Route: 065
     Dates: start: 20170414

REACTIONS (3)
  - Hyperthermia [Recovered/Resolved]
  - Nephrogenic diabetes insipidus [Recovered/Resolved]
  - Pneumonia aspiration [Recovered/Resolved]

NARRATIVE: CASE EVENT DATE: 20170317
